FAERS Safety Report 7127916-X (Version None)
Quarter: 2010Q4

REPORT INFORMATION
  Report Type: 
  Country: None (occurrence: None)
  Receive Date: 20101112
  Receipt Date: 20101104
  Transmission Date: 20110411
  Serious: Yes (Hospitalization)
  Sender: FDA-Public Use
  Company Number: DEP_00430_2010

PATIENT
  Age: 63 Year
  Sex: Female

DRUGS (3)
  1. GLUMETZA [Suspect]
     Indication: DIABETES MELLITUS
     Dosage: (1000 MG QD ORAL)
     Route: 048
     Dates: end: 20100101
  2. GLUMETZA [Suspect]
     Indication: DIABETES MELLITUS
     Dosage: (1000 MG QD ORAL)
     Route: 048
     Dates: start: 20100101, end: 20101001
  3. GLUMETZA [Suspect]
     Indication: DIABETES MELLITUS
     Dosage: (1000 MG QD ORAL)
     Route: 048
     Dates: start: 20101001

REACTIONS (2)
  - BENIGN NEOPLASM OF SPINAL CORD [None]
  - BRAIN NEOPLASM [None]
